FAERS Safety Report 6913439-7 (Version None)
Quarter: 2010Q3

REPORT INFORMATION
  Report Type: 
  Country: None (occurrence: None)
  Receive Date: 20100809
  Receipt Date: 20100728
  Transmission Date: 20110219
  Serious: Yes (Hospitalization)
  Sender: FDA-Public Use
  Company Number: JP-SANOFI-AVENTIS-2010SA044216

PATIENT
  Age: 69 Year
  Sex: Male

DRUGS (10)
  1. ELPLAT [Suspect]
     Indication: COLON CANCER METASTATIC
     Route: 042
     Dates: start: 20100414, end: 20100414
  2. ELPLAT [Suspect]
     Route: 042
  3. LASIX [Suspect]
     Indication: HYPERTENSION
     Route: 048
     Dates: start: 20080801
  4. XELODA [Suspect]
     Indication: COLON CANCER METASTATIC
     Route: 048
     Dates: start: 20100414
  5. XELODA [Suspect]
     Route: 048
     Dates: start: 20100513
  6. CALCIUM CARBONATE [Suspect]
     Route: 048
     Dates: start: 20080801
  7. SALOBEL [Suspect]
     Route: 048
     Dates: start: 20080801
  8. AMLODIPINE [Suspect]
     Indication: HYPERTENSION
     Route: 048
     Dates: start: 20100303
  9. DIOVANE [Suspect]
     Indication: HYPERTENSION
     Route: 048
     Dates: start: 20100303
  10. RESTAMIN [Concomitant]

REACTIONS (2)
  - ADVERSE EVENT [None]
  - BLOOD POTASSIUM INCREASED [None]
